FAERS Safety Report 6172959-6 (Version None)
Quarter: 2009Q2

REPORT INFORMATION
  Report Type: 
  Country: None (occurrence: None)
  Receive Date: 20090430
  Receipt Date: 20090420
  Transmission Date: 20091009
  Serious: Yes (Other)
  Sender: FDA-Public Use
  Company Number: CA-AVENTIS-200912104EU

PATIENT
  Age: 73 Year
  Sex: Male

DRUGS (9)
  1. LASIX [Suspect]
     Dosage: DOSE: UNK
  2. ASPIRIN [Suspect]
     Dosage: DOSE: UNK
  3. AMIODARONE HCL [Suspect]
     Dosage: DOSE: UNK
  4. ACE INHIBITOR NOS [Suspect]
  5. BETA 2 ADRENOCEPTOR AGONIST NOS [Suspect]
  6. FERROUS GLUCONATE [Suspect]
  7. CHOLESTEROL- AND TRIGLYCERIDE REDUCERS [Suspect]
  8. LEVOTHYROXINE SODIUM [Suspect]
  9. WARFARIN [Suspect]

REACTIONS (2)
  - COLITIS [None]
  - MESENTERIC OCCLUSION [None]
